FAERS Safety Report 9147584 (Version 1)
Quarter: 2013Q1

REPORT INFORMATION
  Report Type: Report from Study
  Country: DE (occurrence: DE)
  Receive Date: 20130307
  Receipt Date: 20130307
  Transmission Date: 20140127
  Serious: Yes (Hospitalization)
  Sender: FDA-Public Use
  Company Number: DE-JNJFOC-20121014766

PATIENT
  Age: 62 Year
  Sex: Male
  Weight: 67 kg

DRUGS (4)
  1. USTEKINUMAB [Suspect]
     Indication: PSORIASIS
     Route: 058
     Dates: start: 20120321
  2. USTEKINUMAB [Suspect]
     Indication: PSORIASIS
     Route: 058
     Dates: start: 20121002
  3. AMLODIPINE [Concomitant]
     Dates: start: 201103
  4. TAMSUBLOCK [Concomitant]
     Dates: start: 20121001

REACTIONS (6)
  - Anaemia [Recovered/Resolved]
  - Liver injury [Recovered/Resolved]
  - Alcohol abuse [Recovered/Resolved]
  - Gastric ulcer [Recovered/Resolved]
  - Large intestine polyp [Recovered/Resolved]
  - Gastritis [Recovered/Resolved]
